FAERS Safety Report 20248050 (Version 1)
Quarter: 2021Q4

REPORT INFORMATION
  Report Type: Spontaneous
  Country: CZ (occurrence: CZ)
  Receive Date: 20211229
  Receipt Date: 20211229
  Transmission Date: 20220303
  Serious: Yes (Other)
  Sender: FDA-Public Use
  Company Number: CZ-AMGEN-CZESP2021203306

PATIENT
  Age: 16 Year
  Sex: Female
  Weight: 42.5 kg

DRUGS (2)
  1. ROMIPLOSTIM [Suspect]
     Active Substance: ROMIPLOSTIM
     Indication: Immune thrombocytopenia
     Dosage: UNK
     Route: 065
  2. ELTROMBOPAG [Suspect]
     Active Substance: ELTROMBOPAG
     Indication: Immune thrombocytopenia
     Dosage: UNK
     Route: 065

REACTIONS (11)
  - Systemic lupus erythematosus [Unknown]
  - Autoimmune thyroiditis [Unknown]
  - Hypothyroidism [Unknown]
  - Therapeutic product effect decreased [Unknown]
  - Nausea [Unknown]
  - Haematoma [Unknown]
  - Macrocytosis [Unknown]
  - Hypomagnesaemia [Unknown]
  - Amylase increased [Unknown]
  - Anorexia nervosa [Unknown]
  - Liver disorder [Unknown]

NARRATIVE: CASE EVENT DATE: 20170301
